FAERS Safety Report 21153112 (Version 1)
Quarter: 2022Q3

REPORT INFORMATION
  Report Type: Spontaneous
  Country: US (occurrence: US)
  Receive Date: 20220731
  Receipt Date: 20220731
  Transmission Date: 20221026
  Serious: No
  Sender: FDA-Public Use
  Company Number: US-ELI_LILLY_AND_COMPANY-US202206014313

PATIENT
  Sex: Female

DRUGS (1)
  1. HUMALOG [Suspect]
     Active Substance: INSULIN LISPRO
     Indication: Type 1 diabetes mellitus
     Dosage: 10 U, DAILY (8 TO 10 UNITS WITH SLIDING SCALE)
     Route: 058

REACTIONS (2)
  - COVID-19 [Recovered/Resolved]
  - Blood glucose increased [Recovered/Resolved]
